FAERS Safety Report 17828559 (Version 1)
Quarter: 2020Q2

REPORT INFORMATION
  Report Type: Spontaneous
  Country: US (occurrence: US)
  Receive Date: 20200527
  Receipt Date: 20200527
  Transmission Date: 20200714
  Serious: Yes (Hospitalization)
  Sender: FDA-Public Use
  Company Number: None

PATIENT
  Age: 72 Year
  Sex: Male
  Weight: 112.49 kg

DRUGS (2)
  1. LITHIUM (LITHIUM CARBONATE 450MG TAB, SA) [Suspect]
     Active Substance: LITHIUM CARBONATE
     Indication: BIPOLAR DISORDER
     Route: 048
     Dates: start: 20151019, end: 20200118
  2. LITHIUM (LITHIUM CARBONATE 450MG TAB, SA) [Suspect]
     Active Substance: LITHIUM CARBONATE
     Indication: MANIA
     Route: 048
     Dates: start: 20151019, end: 20200118

REACTIONS (1)
  - Mania [None]

NARRATIVE: CASE EVENT DATE: 20200217
